FAERS Safety Report 24326558 (Version 1)
Quarter: 2024Q3

REPORT INFORMATION
  Report Type: Spontaneous
  Country: US (occurrence: US)
  Receive Date: 20240917
  Receipt Date: 20240917
  Transmission Date: 20241016
  Serious: No
  Sender: SAREPTA THERAPEUTICS
  Company Number: US-SAREPTA THERAPEUTICS INC.-SRP2024-004304

PATIENT
  Age: 16 Year
  Sex: Male
  Weight: 58.1 kg

DRUGS (3)
  1. VYONDYS 53 [Suspect]
     Active Substance: GOLODIRSEN
     Indication: Muscular dystrophy
     Dosage: 1900 MILLIGRAM, WEEKLY
     Route: 042
     Dates: start: 20220830
  2. VYONDYS 53 [Suspect]
     Active Substance: GOLODIRSEN
     Dosage: 1950 MILLIGRAM, SINGLE
     Route: 042
     Dates: start: 20230809, end: 20230809
  3. VYONDYS 53 [Suspect]
     Active Substance: GOLODIRSEN
     Dosage: 2000 MILLIGRAM, WEEKLY
     Route: 042
     Dates: start: 20230817

REACTIONS (2)
  - Overdose [Unknown]
  - No adverse event [Unknown]

NARRATIVE: CASE EVENT DATE: 20230809
